FAERS Safety Report 8808085 (Version 2)
Quarter: 2012Q4

REPORT INFORMATION
  Report Type: 
  Country: US (occurrence: US)
  Receive Date: 20120926
  Receipt Date: 20121031
  Transmission Date: 20130627
  Serious: Yes (Other)
  Sender: FDA-Public Use
  Company Number: US-AMGEN-USASP2012060335

PATIENT
  Sex: Female
  Weight: 82.54 kg

DRUGS (3)
  1. VECTIBIX [Suspect]
     Indication: COLORECTAL CANCER METASTATIC
     Dosage: 500 mg, q2wk
     Route: 042
     Dates: start: 201109, end: 201208
  2. VECTIBIX [Suspect]
     Dosage: UNK
     Dates: start: 201103, end: 20120921
  3. MAGNESIUM [Concomitant]
     Indication: HYPOMAGNESAEMIA
     Dosage: UNK UNK, 3 times/wk
     Route: 042

REACTIONS (1)
  - Retinal tear [Recovering/Resolving]
